FAERS Safety Report 8322991-9 (Version None)
Quarter: 2012Q2

REPORT INFORMATION
  Report Type: 
  Country: None (occurrence: None)
  Receive Date: 20120430
  Receipt Date: 20120416
  Transmission Date: 20120825
  Serious: Yes (Hospitalization, Other)
  Sender: FDA-Public Use
  Company Number: US-MYLANLABS-2009AL001586

PATIENT
  Age: 68 Year
  Sex: Female
  Weight: 77.11 kg

DRUGS (52)
  1. COREG [Concomitant]
  2. GLUCOPHAGE [Concomitant]
  3. ZITHROMAX [Concomitant]
  4. NOVASIL PLUS [Concomitant]
  5. AVANDARYL [Concomitant]
  6. ZOCOR [Concomitant]
  7. FLEXERIL [Concomitant]
  8. HYDROCODONE [Concomitant]
  9. ALTACE [Concomitant]
  10. METFORMIN HCL [Concomitant]
  11. VYTORIN [Concomitant]
  12. LANTUS [Concomitant]
  13. OXYBUTYNIN [Concomitant]
  14. ASPIRIN [Concomitant]
  15. JANUVIA [Concomitant]
  16. CARVEDILOL [Concomitant]
  17. IBUPROFEN [Concomitant]
  18. HYDRON CP [Concomitant]
  19. LEXAPRO [Concomitant]
  20. KLOR-CON [Concomitant]
  21. FEXOFENADINE [Concomitant]
  22. DARVOCET [Concomitant]
     Dosage: 2 TABLETS
  23. DIGOXIN [Suspect]
     Indication: HEART RATE IRREGULAR
     Route: 048
     Dates: start: 20040419, end: 20080411
  24. LEVAQUIN [Concomitant]
  25. COMBIVENT [Concomitant]
  26. GLIPIZIDE [Concomitant]
  27. ZOLPIDEM [Concomitant]
  28. CRESTOR [Concomitant]
  29. TYLENOL (CAPLET) [Concomitant]
  30. MAGNESIUM OXIDE [Concomitant]
  31. PREDNISONE [Concomitant]
  32. VIGAMOX [Concomitant]
  33. RELION HUMULIN [Concomitant]
  34. FERROUS SULFATE TAB [Concomitant]
  35. PROTONIX [Concomitant]
  36. RAMIPRIL [Concomitant]
  37. GLUCOTROL [Concomitant]
  38. CEFACLOR [Concomitant]
  39. AZITHROMYCIN [Concomitant]
  40. AMBIEN [Concomitant]
  41. CLARITHROMYCIN [Concomitant]
  42. COLACE [Concomitant]
  43. FEOSOL [Concomitant]
     Dosage: 5 GRAINS
  44. LASIX [Concomitant]
  45. PLAVIX [Concomitant]
  46. BYETTA [Concomitant]
  47. PLENDIL [Concomitant]
  48. POTASSIUM CHLORIDE [Concomitant]
  49. ASPIRIN [Concomitant]
  50. LUNESTA [Concomitant]
  51. CLOPIDOGREL [Concomitant]
  52. ACTOS [Concomitant]

REACTIONS (56)
  - CARDIAC FAILURE CONGESTIVE [None]
  - IMPLANTABLE DEFIBRILLATOR INSERTION [None]
  - CAROTID ARTERY STENOSIS [None]
  - POSTOPERATIVE FEVER [None]
  - ISCHAEMIC CARDIOMYOPATHY [None]
  - CATARACT [None]
  - OEDEMA PERIPHERAL [None]
  - ILL-DEFINED DISORDER [None]
  - EMOTIONAL DISTRESS [None]
  - TOXICITY TO VARIOUS AGENTS [None]
  - ANGINA PECTORIS [None]
  - MUSCULOSKELETAL PAIN [None]
  - CONGESTIVE CARDIOMYOPATHY [None]
  - PULMONARY HYPERTENSION [None]
  - BREATH SOUNDS ABNORMAL [None]
  - PERIPHERAL VASCULAR DISORDER [None]
  - PAIN [None]
  - FIBRIN D DIMER INCREASED [None]
  - HUMERUS FRACTURE [None]
  - CATHETERISATION CARDIAC ABNORMAL [None]
  - PULMONARY CONGESTION [None]
  - ECONOMIC PROBLEM [None]
  - EJECTION FRACTION DECREASED [None]
  - INTERMITTENT CLAUDICATION [None]
  - ANGIOPLASTY [None]
  - INJURY [None]
  - FATIGUE [None]
  - CHEST PAIN [None]
  - ARTERIAL RESTENOSIS [None]
  - CARDIOMEGALY [None]
  - X-RAY ABNORMAL [None]
  - MYOCARDIAL INFARCTION [None]
  - PERIPHERAL ARTERY ANGIOPLASTY [None]
  - POSTOPERATIVE WOUND COMPLICATION [None]
  - MITRAL VALVE INCOMPETENCE [None]
  - COUGH [None]
  - ECHOCARDIOGRAM ABNORMAL [None]
  - EXCORIATION [None]
  - ILIAC ARTERY STENOSIS [None]
  - ULTRASOUND SCAN ABNORMAL [None]
  - ERYTHEMA [None]
  - MYOCARDIAL ISCHAEMIA [None]
  - VENOUS THROMBOSIS LIMB [None]
  - BUNDLE BRANCH BLOCK LEFT [None]
  - CARDIAC PACEMAKER INSERTION [None]
  - CORONARY ARTERY STENOSIS [None]
  - PYREXIA [None]
  - CAROTID ENDARTERECTOMY [None]
  - DYSPNOEA [None]
  - FALL [None]
  - ATHERECTOMY [None]
  - ELECTROCARDIOGRAM ABNORMAL [None]
  - HYPERTENSION [None]
  - LYMPHADENOPATHY MEDIASTINAL [None]
  - PAIN IN EXTREMITY [None]
  - PERIPHERAL COLDNESS [None]
